FAERS Safety Report 6210876-3 (Version None)
Quarter: 2009Q2

REPORT INFORMATION
  Report Type: 
  Country: None (occurrence: None)
  Receive Date: 20090601
  Receipt Date: 20090522
  Transmission Date: 20091009
  Serious: Yes (Life-Threatening)
  Sender: FDA-Public Use
  Company Number: JP-ABBOTT-09P-087-0570098-00

PATIENT
  Age: 76 Year
  Sex: Male

DRUGS (12)
  1. LEUPLIN SR FOR INJECTION 11.25 MG [Suspect]
     Indication: PROSTATE CANCER STAGE III
     Route: 058
     Dates: start: 20060825
  2. CASODEX [Concomitant]
     Indication: PROSTATE CANCER STAGE III
     Route: 048
     Dates: end: 20070309
  3. PRAVASTATIN SODIUM [Concomitant]
     Indication: HYPERLIPIDAEMIA
     Route: 048
  4. CYANOCOBALAMIN [Concomitant]
     Indication: HYPOAESTHESIA
     Route: 048
  5. CYANOCOBALAMIN [Concomitant]
     Indication: PROPHYLAXIS
  6. CYANOCOBALAMIN [Concomitant]
     Indication: ARTERIOSCLEROSIS OBLITERANS
  7. ENTERONON R [Concomitant]
     Indication: BOWEL MOVEMENT IRREGULARITY
     Route: 048
  8. MAGNESIUM OXIDE [Concomitant]
     Indication: CONSTIPATION
     Route: 048
  9. PLETAL [Concomitant]
     Indication: PROPHYLAXIS
     Route: 048
  10. PLETAL [Concomitant]
     Indication: ARTERIOSCLEROSIS OBLITERANS
  11. LIMAPROST [Concomitant]
     Indication: PROPHYLAXIS
     Route: 048
  12. LIMAPROST [Concomitant]
     Indication: ARTERIOSCLEROSIS OBLITERANS

REACTIONS (1)
  - DEEP VEIN THROMBOSIS [None]
